FAERS Safety Report 14638411 (Version 1)
Quarter: 2018Q1

REPORT INFORMATION
  Report Type: Spontaneous
  Country: US (occurrence: US)
  Receive Date: 20180314
  Receipt Date: 20180314
  Transmission Date: 20180509
  Serious: Yes (Other)
  Sender: FDA-Public Use
  Company Number: None

PATIENT
  Age: 49 Year
  Sex: Female
  Weight: 76.2 kg

DRUGS (10)
  1. HUMIRA [Suspect]
     Active Substance: ADALIMUMAB
     Indication: PSORIATIC ARTHROPATHY
     Dates: start: 2004, end: 2017
  2. OXYCONTIN [Concomitant]
     Active Substance: OXYCODONE HYDROCHLORIDE
  3. FLEXERAL [Concomitant]
  4. DULOXITINE [Concomitant]
  5. BIOTIN [Concomitant]
     Active Substance: BIOTIN
  6. OMEPRAZOLE. [Concomitant]
     Active Substance: OMEPRAZOLE
  7. SELENIUM [Concomitant]
     Active Substance: SELENIUM
  8. MELOXICAM. [Concomitant]
     Active Substance: MELOXICAM
  9. METHIMAZOLE. [Concomitant]
     Active Substance: METHIMAZOLE
  10. ATENOLOL. [Concomitant]
     Active Substance: ATENOLOL

REACTIONS (8)
  - Thyroid disorder [None]
  - Gingival disorder [None]
  - Lymphadenopathy [None]
  - Tooth loss [None]
  - Intervertebral disc degeneration [None]
  - Bursitis [None]
  - Neuropathy peripheral [None]
  - Staphylococcal infection [None]

NARRATIVE: CASE EVENT DATE: 20090101
